FAERS Safety Report 5425389-6 (Version None)
Quarter: 2007Q3

REPORT INFORMATION
  Report Type: 
  Country: None (occurrence: None)
  Receive Date: 20070824
  Receipt Date: 20070824
  Transmission Date: 20080115
  Serious: Yes (Hospitalization)
  Sender: FDA-Public Use
  Company Number: DE-ROXANE LABORATORIES, INC-2007-DE-04933GD

PATIENT
  Age: 37 Year
  Sex: Male

DRUGS (11)
  1. OXAZEPAM [Suspect]
  2. IBUPROFEN [Suspect]
  3. COCAINE [Suspect]
  4. DOXEPIN HCL [Suspect]
  5. CITALOPRAM [Suspect]
  6. TILIDINE [Suspect]
  7. NALOXONE [Suspect]
  8. BUPRENORPHINE HCL [Suspect]
  9. FLUNITRAZEPAM [Suspect]
  10. TRIMIPRAMINE MALEATE [Suspect]
  11. PAROXETINE [Suspect]

REACTIONS (3)
  - COMA [None]
  - DRUG TOXICITY [None]
  - TACHYCARDIA [None]
